FAERS Safety Report 19737918 (Version 1)
Quarter: 2021Q3

REPORT INFORMATION
  Report Type: Spontaneous
  Country: CA (occurrence: CA)
  Receive Date: 20210824
  Receipt Date: 20210824
  Transmission Date: 20211014
  Serious: Yes (Other)
  Sender: FDA-Public Use
  Company Number: CA-ORION CORPORATION ORION PHARMA-21_00015563

PATIENT
  Age: 80 Year
  Sex: Female
  Weight: 81.63 kg

DRUGS (2)
  1. FOLIC ACID. [Concomitant]
     Active Substance: FOLIC ACID
     Route: 065
  2. METHOTREXATE (TRADE NAME UNKNOWN) [Suspect]
     Active Substance: METHOTREXATE
     Indication: PRODUCT USED FOR UNKNOWN INDICATION
     Dosage: 3X 2.5MG TABLETS, WEEKLY
     Route: 065

REACTIONS (5)
  - Visual impairment [Not Recovered/Not Resolved]
  - Product dose omission issue [Unknown]
  - Macular degeneration [Unknown]
  - Hypertension [Not Recovered/Not Resolved]
  - Glaucoma [Unknown]

NARRATIVE: CASE EVENT DATE: 202012
